FAERS Safety Report 5086862-6 (Version None)
Quarter: 2006Q3

REPORT INFORMATION
  Report Type: 
  Country: None (occurrence: None)
  Receive Date: 20060818
  Receipt Date: 20060802
  Transmission Date: 20061208
  Serious: Yes (Hospitalization)
  Sender: FDA-Public Use
  Company Number: US-2005-024566

PATIENT
  Age: 60 Year
  Sex: Male
  Weight: 79.4 kg

DRUGS (5)
  1. BETASERON [Suspect]
     Indication: SECONDARY PROGRESSIVE MULTIPLE SCLEROSIS
     Dosage: 8 MIU, EVERY 2D, SUBCUTANEOUS
     Route: 058
     Dates: start: 19940622
  2. VALTREX [Concomitant]
  3. SKELAXIN [Concomitant]
  4. TYLENOL [Concomitant]
  5. MVI (VITAMINS MOS) [Concomitant]

REACTIONS (10)
  - ASTHENIA [None]
  - GAIT DISTURBANCE [None]
  - HYPOKALAEMIA [None]
  - INJECTION SITE ABSCESS [None]
  - INJECTION SITE CELLULITIS [None]
  - INJECTION SITE INFECTION [None]
  - LEUKOCYTOSIS [None]
  - PAIN IN EXTREMITY [None]
  - PYREXIA [None]
  - VOMITING [None]
